FAERS Safety Report 24196640 (Version 1)
Quarter: 2024Q3

REPORT INFORMATION
  Report Type: Spontaneous
  Country: US (occurrence: US)
  Receive Date: 20240810
  Receipt Date: 20240810
  Transmission Date: 20241017
  Serious: No
  Sender: ABBVIE
  Company Number: US-ABBVIE-5869785

PATIENT
  Sex: Female

DRUGS (1)
  1. RISANKIZUMAB [Suspect]
     Active Substance: RISANKIZUMAB
     Indication: Psoriasis
     Dosage: DOSAGE: 150 MG/ML
     Route: 058

REACTIONS (4)
  - Vomiting [Unknown]
  - Product storage error [Unknown]
  - Fatigue [Unknown]
  - Stress [Unknown]
